FAERS Safety Report 13003496 (Version 1)
Quarter: 2016Q4

REPORT INFORMATION
  Report Type: Spontaneous
  Country: US (occurrence: US)
  Receive Date: 20161206
  Receipt Date: 20161206
  Transmission Date: 20170207
  Serious: No
  Sender: FDA-Public Use
  Company Number: US-ASTRAZENECA-2016SF21744

PATIENT
  Sex: Female

DRUGS (8)
  1. LORSARTAN/HYDROCHLOROTHIAZIDE [Concomitant]
     Dosage: 50 MG /12.5MG DAILY
     Route: 065
  2. OTC COQ10 [Concomitant]
     Dosage: DAILY
     Route: 065
  3. FASLODEX [Suspect]
     Active Substance: FULVESTRANT
     Indication: BREAST CANCER METASTATIC
     Dosage: 500.0MG UNKNOWN
     Route: 030
  4. CALCIUM [Concomitant]
     Active Substance: CALCIUM
     Route: 065
  5. ATORVASTATIN [Concomitant]
     Active Substance: ATORVASTATIN
     Route: 065
  6. BIOTIN LOW DOSE [Concomitant]
     Dosage: DAILY
     Route: 065
  7. IBRANCE [Suspect]
     Active Substance: PALBOCICLIB
     Indication: BREAST CANCER METASTATIC
     Dosage: 75 MG 3 WEEKS OFF AND ONE WEEK ON
     Route: 065
  8. OMEGA 3 ETHYL ESTHER [Concomitant]
     Route: 065

REACTIONS (2)
  - Blood pressure decreased [Recovered/Resolved]
  - Syncope [Recovered/Resolved]
